FAERS Safety Report 8760537 (Version 2)
Quarter: 2012Q4

REPORT INFORMATION
  Report Type: 
  Country: FR (occurrence: FR)
  Receive Date: 20120830
  Receipt Date: 20120912
  Transmission Date: 20130627
  Serious: Yes (Other)
  Sender: FDA-Public Use
  Company Number: PHHY2012FR073862

PATIENT
  Age: 70 Year
  Sex: Male
  Weight: 95 kg

DRUGS (7)
  1. VALSARTAN [Suspect]
     Indication: MYOCARDIAL INFARCTION
     Dosage: 1 DF (80 mg) , daily daily in the morning
  2. ASPIRIN LYSINE [Concomitant]
     Indication: MYOCARDIAL INFARCTION
  3. ISOPTINE [Concomitant]
  4. QUESTRAN [Concomitant]
  5. EZETIMIBE [Concomitant]
  6. CARTREX [Concomitant]
  7. OGAST [Concomitant]

REACTIONS (6)
  - Prostate cancer [Unknown]
  - Tendonitis [Unknown]
  - Pain in extremity [Unknown]
  - Blood uric acid increased [Unknown]
  - Blood creatinine increased [Unknown]
  - Muscle spasms [Unknown]
